FAERS Safety Report 5324745-4 (Version None)
Quarter: 2007Q2

REPORT INFORMATION
  Report Type: 
  Country: None (occurrence: None)
  Receive Date: 20070220
  Receipt Date: 20061211
  Transmission Date: 20071010
  Serious: No
  Sender: FDA-Public Use
  Company Number: WAES 0612USA01375

PATIENT
  Age: 53 Year
  Sex: Male
  Weight: 124.2856 kg

DRUGS (2)
  1. JANUVIA [Suspect]
     Indication: DIABETES MELLITUS
     Dosage: 100 MG DAILY PO
     Route: 048
     Dates: start: 20061027
  2. GLUCOVANCE [Concomitant]

REACTIONS (1)
  - BLOOD GLUCOSE DECREASED [None]
